FAERS Safety Report 12928878 (Version 1)
Quarter: 2016Q4

REPORT INFORMATION
  Report Type: Spontaneous
  Country: US (occurrence: US)
  Receive Date: 20161110
  Receipt Date: 20161110
  Transmission Date: 20170207
  Serious: No
  Sender: FDA-Public Use
  Company Number: US-BEH-2016075113

PATIENT
  Age: 70 Year
  Sex: Female

DRUGS (12)
  1. ZYRTEC [Concomitant]
     Active Substance: CETIRIZINE HYDROCHLORIDE
     Dosage: 10 MG, UNK
     Route: 065
  2. FISH OIL [Concomitant]
     Active Substance: FISH OIL
     Dosage: 1000 MG, UNK
     Route: 065
  3. AZELASTINE [Concomitant]
     Active Substance: AZELASTINE
     Dosage: 0.1 %, UNK
     Route: 065
  4. PANTOPRAZOLE [Concomitant]
     Active Substance: PANTOPRAZOLE SODIUM
     Dosage: 40 MG, UNK
     Route: 065
  5. GLIPIZIDE. [Concomitant]
     Active Substance: GLIPIZIDE
     Dosage: 10 MG, UNK
     Route: 065
  6. ASPIRIN. [Concomitant]
     Active Substance: ASPIRIN
     Dosage: 81 MG, UNK
     Route: 065
  7. HIZENTRA [Suspect]
     Active Substance: HUMAN IMMUNOGLOBULIN G
     Indication: IMMUNODEFICIENCY COMMON VARIABLE
     Dosage: 12 G, QW
     Route: 058
     Dates: start: 20161103
  8. FLONASE [Concomitant]
     Active Substance: FLUTICASONE PROPIONATE
     Dosage: 50 MCG, UNK
     Route: 065
  9. LANTUS [Concomitant]
     Active Substance: INSULIN GLARGINE
     Route: 065
  10. PRAVASTATIN. [Concomitant]
     Active Substance: PRAVASTATIN
     Dosage: 40 MG, UNK
     Route: 065
  11. SINGULAIR [Concomitant]
     Active Substance: MONTELUKAST SODIUM
     Dosage: 10 MG, UNK
     Route: 065
  12. SUCRALFATE. [Concomitant]
     Active Substance: SUCRALFATE
     Dosage: 1 G, UNK
     Route: 065

REACTIONS (1)
  - Infusion site pain [Recovered/Resolved]

NARRATIVE: CASE EVENT DATE: 20161103
